FAERS Safety Report 5599754-0 (Version None)
Quarter: 2008Q1

REPORT INFORMATION
  Report Type: 
  Country: None (occurrence: None)
  Receive Date: 20080117
  Receipt Date: 20080104
  Transmission Date: 20080703
  Serious: Yes (Hospitalization, Other)
  Sender: FDA-Public Use
  Company Number: CIP08000034

PATIENT
  Age: 83 Year
  Sex: Male

DRUGS (9)
  1. RISEDRONATE SODIUM [Suspect]
     Indication: OSTEOPOROSIS
     Dosage: 2.5 MG, DAILY, ORAL
     Route: 048
  2. AMLODIPINE BESYLATE [Concomitant]
  3. ALESION (EPINASTINE HYDROCHLORIDE) [Concomitant]
  4. AZUCURENIN S (SODIUM GUALENATE, LEVOGLUTAMIDE) [Concomitant]
  5. SODIUM BICARBONATE IN PLASTIC CONTAINER [Concomitant]
  6. MOBIC [Concomitant]
  7. FAMOTIDINE [Concomitant]
  8. ATINES (EPERISONE HYDROCHLORIDE) [Concomitant]
  9. PREDNISONE [Concomitant]

REACTIONS (4)
  - JOINT DISLOCATION [None]
  - MALAISE [None]
  - OSTEONECROSIS [None]
  - PYREXIA [None]
